FAERS Safety Report 12104783 (Version 3)
Quarter: 2016Q1

REPORT INFORMATION
  Report Type: Spontaneous
  Country: US (occurrence: US)
  Receive Date: 20160223
  Receipt Date: 20160317
  Transmission Date: 20160526
  Serious: Yes (Other)
  Sender: FDA-Public Use
  Company Number: US-PFIZER INC-2016047169

PATIENT
  Age: 75 Year
  Sex: Male

DRUGS (21)
  1. PLAVIX [Concomitant]
     Active Substance: CLOPIDOGREL BISULFATE
     Dosage: 75 MG, 1X/DAY, MORNING
  2. IMDUR [Concomitant]
     Active Substance: ISOSORBIDE MONONITRATE
     Dosage: 30 MG, 1X/DAY, MORNING
  3. COENZYME Q10 [Concomitant]
     Active Substance: UBIDECARENONE
     Dosage: 200 MG, 1X/DAY, MORNING
  4. XANAX [Concomitant]
     Active Substance: ALPRAZOLAM
     Dosage: 50 MG, 1X/DAY, BEDTIME
  5. VIT. D [Concomitant]
     Dosage: 2000 IU, 1X/DAY,
  6. SYNTHROID [Concomitant]
     Active Substance: LEVOTHYROXINE SODIUM
     Dosage: 88 UG, 1X/DAY, 1 HR BEFORE BREAKFAST
  7. NITROSTAT [Concomitant]
     Active Substance: NITROGLYCERIN
     Dosage: 0.4 MG, AS NEEDED, (WHEN NEEDED)
  8. CALCITRIOL. [Concomitant]
     Active Substance: CALCITRIOL
     Dosage: 0.25 UG, 1X/DAY, MORNING
  9. IRON [Concomitant]
     Active Substance: IRON
     Dosage: 65 MG, 1X/DAY, MORNING
  10. LIPITOR [Concomitant]
     Active Substance: ATORVASTATIN CALCIUM
     Dosage: 80 MG, 1X/DAY, BEDTIME
  11. RANITIDINE [Concomitant]
     Active Substance: RANITIDINE\RANITIDINE HYDROCHLORIDE
     Dosage: 300 MG, 1X/DAY, BEDTIME
  12. PROTONIX [Concomitant]
     Active Substance: PANTOPRAZOLE SODIUM
     Dosage: 40 MG, 2X/DAY, 1HR BEFORE MEALS
  13. TOPROL XL [Concomitant]
     Active Substance: METOPROLOL SUCCINATE
     Dosage: 25 MG, 1X/DAY (MORNING)
  14. TRICOR [Concomitant]
     Active Substance: FENOFIBRATE
     Dosage: 48 MG, 2X/DAY
  15. FINASTERIDE. [Concomitant]
     Active Substance: FINASTERIDE
     Dosage: 5 MG, 1X/DAY, BEDTIME
  16. ATORVASTATIN CALCIUM. [Suspect]
     Active Substance: ATORVASTATIN CALCIUM
     Dosage: 80 MG, DAILY
     Route: 048
  17. CELEXA [Concomitant]
     Active Substance: CITALOPRAM HYDROBROMIDE
     Dosage: 20 MG, 1X/DAY BEDTIME
  18. VITAMIN B12 [Concomitant]
     Active Substance: CYANOCOBALAMIN
     Dosage: 1000 UG, 1X/DAY, MORNING
  19. XANAX [Concomitant]
     Active Substance: ALPRAZOLAM
     Dosage: 0.25 MG, 1X/DAY, MORNING
  20. RANEXA [Concomitant]
     Active Substance: RANOLAZINE
     Dosage: 500 MG, 2X/DAY
  21. ASPIRIN. [Concomitant]
     Active Substance: ASPIRIN
     Dosage: 81 MG, 1X/DAY, MORNING

REACTIONS (1)
  - Arterial occlusive disease [Unknown]
